FAERS Safety Report 7732894-6 (Version None)
Quarter: 2011Q3

REPORT INFORMATION
  Report Type: 
  Country: None (occurrence: None)
  Receive Date: 20110907
  Receipt Date: 20110824
  Transmission Date: 20111222
  Serious: No
  Sender: FDA-Public Use
  Company Number: SG-JNJFOC-20110901382

PATIENT

DRUGS (1)
  1. DURAGESIC-100 [Suspect]
     Indication: ANALGESIC THERAPY
     Dosage: 12 UG/HR PLUS 25 UG/HR
     Route: 062

REACTIONS (2)
  - INAPPROPRIATE SCHEDULE OF DRUG ADMINISTRATION [None]
  - DRUG EFFECT DECREASED [None]
